FAERS Safety Report 5009214-3 (Version None)
Quarter: 2006Q2

REPORT INFORMATION
  Report Type: 
  Country: None (occurrence: None)
  Receive Date: 20060519
  Receipt Date: 20060327
  Transmission Date: 20061013
  Serious: Yes (Life-Threatening, Hospitalization)
  Sender: FDA-Public Use
  Company Number: 2006BI004876

PATIENT
  Age: 44 Year
  Sex: Female
  Weight: 90 kg

DRUGS (23)
  1. ZEVALIN [Suspect]
     Indication: BONE MARROW CONDITIONING REGIMEN
     Dosage: 32 MCI; 1X; IV
     Route: 042
     Dates: start: 20060223, end: 20060223
  2. RITUXIMAB [Concomitant]
  3. RITUXIMAB [Concomitant]
  4. CARMUSTINE [Concomitant]
  5. ETOPOSIDE [Concomitant]
  6. ARACYTINE [Concomitant]
  7. MELPHALAN [Concomitant]
  8. ALIZAPRIDE [Concomitant]
  9. BENZNIDAZOLE [Concomitant]
  10. TRAMADOL HCL [Concomitant]
  11. BENZODIAZEPINE DERIVATIVES [Concomitant]
  12. HEPARIN [Concomitant]
  13. POLARAMINE [Concomitant]
  14. ACYCLOVIR [Concomitant]
  15. PIPERACETAZINE [Concomitant]
  16. TAZOBACTAM [Concomitant]
  17. TEICOPLANIN [Concomitant]
  18. FLUCONAZOLE [Concomitant]
  19. IDARAC [Concomitant]
  20. NEUPOGEN [Concomitant]
  21. TRILEPTAL [Concomitant]
  22. MIRTAZAPINE [Concomitant]
  23. AMLODIPINE [Concomitant]

REACTIONS (3)
  - HAEMODIALYSIS [None]
  - HAEMOGLOBIN DECREASED [None]
  - RENAL FAILURE ACUTE [None]
